FAERS Safety Report 19151458 (Version 2)
Quarter: 2023Q2

REPORT INFORMATION
  Report Type: Spontaneous
  Country: US (occurrence: US)
  Receive Date: 20210419
  Receipt Date: 20230515
  Transmission Date: 20230721
  Serious: Yes (Other)
  Sender: FDA-Public Use
  Company Number: US-UCBSA-2020021051

PATIENT
  Sex: Male

DRUGS (2)
  1. NEUPRO [Suspect]
     Active Substance: ROTIGOTINE
     Indication: Product used for unknown indication
     Dosage: MY DOSE IS HIGHER THAN 2 MG
  2. NEUPRO [Suspect]
     Active Substance: ROTIGOTINE
     Dosage: AT 4 MG

REACTIONS (2)
  - Hallucination [Unknown]
  - Application site rash [Unknown]
